FAERS Safety Report 8071731-X (Version None)
Quarter: 2012Q1

REPORT INFORMATION
  Report Type: 
  Country: None (occurrence: None)
  Receive Date: 20120125
  Receipt Date: 20120123
  Transmission Date: 20120608
  Serious: Yes (Hospitalization, Other)
  Sender: FDA-Public Use
  Company Number: GB-MERCK-1106GBR00108

PATIENT
  Age: 66 Year
  Sex: Female

DRUGS (9)
  1. ZOCOR [Suspect]
     Indication: BLOOD CHOLESTEROL INCREASED
     Route: 048
     Dates: start: 20100101, end: 20110228
  2. LEVOTHYROXINE SODIUM [Concomitant]
     Indication: HYPOTHYROIDISM
     Route: 048
     Dates: start: 20100101
  3. CLOZAPINE [Suspect]
     Route: 048
     Dates: start: 20010305
  4. CLOZAPINE [Suspect]
     Route: 048
     Dates: start: 20030101, end: 20110228
  5. AMISULPRIDE [Suspect]
     Route: 048
     Dates: start: 20030101, end: 20110228
  6. AMISULPRIDE [Suspect]
     Indication: SCHIZOPHRENIA
     Route: 048
     Dates: start: 20110401
  7. CLOZAPINE [Suspect]
     Indication: SCHIZOPHRENIA
     Route: 048
     Dates: start: 20110401
  8. CLOZAPINE [Suspect]
     Route: 065
     Dates: start: 20111220, end: 20120107
  9. ASPIRIN [Concomitant]
     Route: 065

REACTIONS (10)
  - BLOOD ALKALINE PHOSPHATASE INCREASED [None]
  - OVARIAN ADENOMA [None]
  - PNEUMONIA [None]
  - BLOOD BILIRUBIN INCREASED [None]
  - ATRIAL FIBRILLATION [None]
  - HAEMOGLOBIN DECREASED [None]
  - INTERNATIONAL NORMALISED RATIO INCREASED [None]
  - LIVER FUNCTION TEST ABNORMAL [None]
  - ALANINE AMINOTRANSFERASE INCREASED [None]
  - HYPOTHYROIDISM [None]
